FAERS Safety Report 12136653 (Version 1)
Quarter: 2016Q1

REPORT INFORMATION
  Report Type: Spontaneous
  Country: GB (occurrence: GB)
  Receive Date: 20160302
  Receipt Date: 20160302
  Transmission Date: 20160526
  Serious: Yes (Other)
  Sender: FDA-Public Use
  Company Number: GB-SA-2016SA039107

PATIENT
  Sex: Female

DRUGS (1)
  1. FABRAZYME [Suspect]
     Active Substance: AGALSIDASE BETA
     Route: 041

REACTIONS (6)
  - Neuropathy peripheral [Unknown]
  - Fatigue [Unknown]
  - Pain [Unknown]
  - Insomnia [Unknown]
  - Decreased appetite [Unknown]
  - Diarrhoea [Unknown]
